FAERS Safety Report 6251856-1 (Version None)
Quarter: 2009Q2

REPORT INFORMATION
  Report Type: 
  Country: None (occurrence: None)
  Receive Date: 20090630
  Receipt Date: 20090618
  Transmission Date: 20091009
  Serious: Yes (Other)
  Sender: FDA-Public Use
  Company Number: AT-PFIZER INC-2009229923

PATIENT

DRUGS (2)
  1. TRESLEEN [Suspect]
     Indication: ANXIETY
     Dosage: 50 MG, 1X/DAY
     Route: 048
     Dates: start: 20090101
  2. TRESLEEN [Suspect]
     Indication: MALAISE

REACTIONS (1)
  - ABORTION SPONTANEOUS [None]
